FAERS Safety Report 11395952 (Version 2)
Quarter: 2015Q4

REPORT INFORMATION
  Report Type: Spontaneous
  Country: US (occurrence: US)
  Receive Date: 20150819
  Receipt Date: 20151022
  Transmission Date: 20160304
  Serious: Yes (Hospitalization)
  Sender: FDA-Public Use
  Company Number: US-JNJFOC-20150802714

PATIENT
  Age: 78 Year
  Sex: Female

DRUGS (10)
  1. PANTOPRAZOLE [Concomitant]
     Active Substance: PANTOPRAZOLE SODIUM
  2. XARELTO [Suspect]
     Active Substance: RIVAROXABAN
     Indication: ATRIAL FIBRILLATION
     Dosage: 20MG LOWERED TO 15MG BY??END OF USE
     Route: 048
     Dates: start: 20140303, end: 20141122
  3. ASPIRIN. [Suspect]
     Active Substance: ASPIRIN
     Indication: PRODUCT USED FOR UNKNOWN INDICATION
     Route: 048
  4. ACETYLCYSTEINE. [Concomitant]
     Active Substance: ACETYLCYSTEINE
  5. VALACYCLOVIR [Concomitant]
     Active Substance: VALACYCLOVIR HYDROCHLORIDE
  6. XARELTO [Suspect]
     Active Substance: RIVAROXABAN
     Indication: CEREBROVASCULAR ACCIDENT PROPHYLAXIS
     Dosage: 20MG LOWERED TO 15MG BY??END OF USE
     Route: 048
     Dates: start: 20140303, end: 20141122
  7. ISOSORBIDE MONONITRATE. [Concomitant]
     Active Substance: ISOSORBIDE MONONITRATE
  8. XARELTO [Suspect]
     Active Substance: RIVAROXABAN
     Indication: THROMBOSIS PROPHYLAXIS
     Dosage: 20MG LOWERED TO 15MG BY??END OF USE
     Route: 048
     Dates: start: 20140303, end: 20141122
  9. LASIX [Concomitant]
     Active Substance: FUROSEMIDE
  10. METOPROLOL [Concomitant]
     Active Substance: METOPROLOL

REACTIONS (2)
  - Gastrointestinal haemorrhage [Unknown]
  - Renal impairment [Unknown]

NARRATIVE: CASE EVENT DATE: 20141120
